FAERS Safety Report 12300757 (Version 1)
Quarter: 2016Q2

REPORT INFORMATION
  Report Type: Spontaneous
  Country: AR (occurrence: AR)
  Receive Date: 20160425
  Receipt Date: 20160425
  Transmission Date: 20160815
  Serious: Yes (Other)
  Sender: FDA-Public Use
  Company Number: AR-TEVA-607087ISR

PATIENT
  Age: 0 Day
  Sex: Female

DRUGS (1)
  1. FILARTROS [Suspect]
     Active Substance: LEFLUNOMIDE
     Indication: RHEUMATOID ARTHRITIS
     Route: 064
     Dates: start: 201502, end: 201507

REACTIONS (3)
  - Low birth weight baby [Recovering/Resolving]
  - Hypoglycaemia neonatal [Recovering/Resolving]
  - Foetal exposure during pregnancy [Unknown]

NARRATIVE: CASE EVENT DATE: 20160312
